FAERS Safety Report 7766756-5 (Version None)
Quarter: 2011Q3

REPORT INFORMATION
  Report Type: 
  Country: None (occurrence: None)
  Receive Date: 20110922
  Receipt Date: 20110315
  Transmission Date: 20111222
  Serious: No
  Sender: FDA-Public Use
  Company Number: US-ASTRAZENECA-2011SE14673

PATIENT
  Age: 49 Year
  Sex: Female
  Weight: 49.9 kg

DRUGS (6)
  1. SEROQUEL [Suspect]
     Indication: SLEEP DISORDER
     Route: 048
     Dates: start: 20080101
  2. SEROQUEL [Suspect]
     Indication: ANXIETY
     Route: 048
     Dates: start: 20080101
  3. TOPAMAX [Concomitant]
     Indication: MIGRAINE
  4. KLONOPIN [Concomitant]
     Indication: ANXIETY
  5. SEROQUEL [Suspect]
     Route: 048
     Dates: start: 20080101
  6. SEROQUEL [Suspect]
     Route: 048
     Dates: start: 20080101

REACTIONS (5)
  - OFF LABEL USE [None]
  - WRONG TECHNIQUE IN DRUG USAGE PROCESS [None]
  - DEPRESSED MOOD [None]
  - WEIGHT DECREASED [None]
  - INSOMNIA [None]
